FAERS Safety Report 12611141 (Version 2)
Quarter: 2016Q3

REPORT INFORMATION
  Report Type: Spontaneous
  Country: US (occurrence: US)
  Receive Date: 20160801
  Receipt Date: 20160822
  Transmission Date: 20161109
  Serious: Yes (Death, Other)
  Sender: FDA-Public Use
  Company Number: US-GLAXOSMITHKLINE-US2016110587

PATIENT
  Sex: Female

DRUGS (2)
  1. CITRUCEL [Suspect]
     Active Substance: METHYLCELLULOSE (4000 MPA.S)
     Indication: PRODUCT USED FOR UNKNOWN INDICATION
     Dosage: UNK
  2. CITRUCEL [Suspect]
     Active Substance: METHYLCELLULOSE (4000 MPA.S)
     Indication: PRODUCT USED FOR UNKNOWN INDICATION
     Dosage: UNK

REACTIONS (1)
  - Death [Fatal]
